FAERS Safety Report 10075994 (Version 2)
Quarter: 2014Q2

REPORT INFORMATION
  Report Type: Spontaneous
  Country: NO (occurrence: NO)
  Receive Date: 20140414
  Receipt Date: 20140414
  Transmission Date: 20141212
  Serious: Yes (Hospitalization)
  Sender: FDA-Public Use
  Company Number: ALCN2012NO004581

PATIENT
  Age: 67 Year
  Sex: Male

DRUGS (1)
  1. FLUORESCEIN SODIUM [Suspect]
     Indication: ANGIOGRAM RETINA
     Route: 042

REACTIONS (25)
  - Anaphylactic shock [Recovered/Resolved]
  - Myocardial ischaemia [Recovered/Resolved]
  - Cerebral hypoperfusion [Recovered/Resolved]
  - Cardiac output decreased [Recovered/Resolved]
  - Myocardial necrosis marker increased [Recovered/Resolved]
  - Pulseless electrical activity [Recovered/Resolved]
  - Haemodynamic instability [Recovered/Resolved]
  - Hypovolaemia [Recovered/Resolved]
  - Obstructive airways disorder [Recovered/Resolved]
  - Pneumonia [Recovered/Resolved]
  - Increased viscosity of bronchial secretion [Recovered/Resolved]
  - Salivary hypersecretion [Recovered/Resolved]
  - Pulmonary oedema [Recovered/Resolved]
  - Angioedema [Recovered/Resolved]
  - Tongue oedema [Recovered/Resolved]
  - Lip oedema [Recovered/Resolved]
  - Circumoral oedema [Recovered/Resolved]
  - Laryngeal oedema [Recovered/Resolved]
  - Agitation [Recovered/Resolved]
  - Confusional state [Recovered/Resolved]
  - Chest pain [Recovered/Resolved]
  - Dyspnoea [Recovered/Resolved]
  - Apnoea [Recovered/Resolved]
  - Sneezing [Recovered/Resolved]
  - Restlessness [Recovered/Resolved]
